FAERS Safety Report 12896882 (Version 5)
Quarter: 2017Q1

REPORT INFORMATION
  Report Type: Spontaneous
  Country: US (occurrence: US)
  Receive Date: 20161031
  Receipt Date: 20170110
  Transmission Date: 20170428
  Serious: Yes (Other)
  Sender: FDA-Public Use
  Company Number: US-PFIZER INC-2016502001

PATIENT
  Age: 74 Year
  Sex: Female

DRUGS (22)
  1. BACLOFEN. [Concomitant]
     Active Substance: BACLOFEN
     Dosage: UNK
     Dates: end: 20161004
  2. FLEXERIL [Concomitant]
     Active Substance: CYCLOBENZAPRINE HYDROCHLORIDE
     Indication: PAIN IN EXTREMITY
     Dosage: 10 MG TABLET TAKE ONE-HALF TO ONE TABLET BY MOUTH ONCE DAILY AT BEDTIME
     Route: 048
  3. PREMARIN [Concomitant]
     Active Substance: ESTROGENS, CONJUGATED
     Dosage: 25 MG, WEEKLY
  4. TRAMADOL. [Concomitant]
     Active Substance: TRAMADOL
     Dosage: 50MG 2 AM, 2 PM, 2 EVENING, 2 NIGHT
  5. MOBIC [Concomitant]
     Active Substance: MELOXICAM
     Indication: PAIN
  6. LYRICA [Suspect]
     Active Substance: PREGABALIN
     Indication: PAIN
     Dosage: 25 MG 9:00 AM, 25 MG 2:00 PM, 50 MG 11:00 PM
  7. LESCOL XL [Concomitant]
     Active Substance: FLUVASTATIN SODIUM
     Indication: BLOOD CHOLESTEROL INCREASED
     Dosage: 80 MG, 1X/DAY [BEFORE BED ]
     Dates: start: 2000
  8. BACLOFEN. [Concomitant]
     Active Substance: BACLOFEN
     Dosage: 10 MG, UNK
     Dates: end: 201609
  9. VITAMIN D [Concomitant]
     Active Substance: CHOLECALCIFEROL
     Dosage: 5000 IU, 1X/DAY (AM)
     Route: 048
     Dates: start: 2012
  10. TRAMADOL. [Concomitant]
     Active Substance: TRAMADOL
     Indication: PAIN
     Dosage: 2-50 MC 9:00 AM, 2:00 PM, 7:00 PM (EVENING), 11:00 PM (BEFORE BED)
     Dates: start: 2010
  11. LYRICA [Suspect]
     Active Substance: PREGABALIN
     Indication: PAIN
     Dosage: 1 AM,1 PM,1  EVENING, 2 BEFORE BED
  12. CYCLOBENZAPRINE [Concomitant]
     Active Substance: CYCLOBENZAPRINE
     Dosage: 10 MG, 1X/DAY (1 NIGHT)
     Dates: start: 20161004
  13. LYRICA [Suspect]
     Active Substance: PREGABALIN
     Indication: PAIN IN EXTREMITY
     Dosage: 25 MG 9:00 AM, 2:00 PM, 7:00 PM, 11:00 PM
  14. LYRICA [Suspect]
     Active Substance: PREGABALIN
     Dosage: (10 MG AM, 10 MG PM, 20 MG NIGHT TIME)
     Dates: start: 2009
  15. LYRICA [Suspect]
     Active Substance: PREGABALIN
     Dosage: 25 MG CAPSULE 1 TAB EACH AM, MID-DAY, 2 TABS AT BEDTIME
  16. ULTRAM [Concomitant]
     Active Substance: TRAMADOL HYDROCHLORIDE
     Indication: PAIN
     Dosage: AS NEEDED (TAKE 1-2 TABS EVERY 6 HOURS AS NEEDED)
  17. MYRBETRIQ [Concomitant]
     Active Substance: MIRABEGRON
     Indication: HYPERTONIC BLADDER
     Dosage: 25 MG, 1X/DAY [BEFORE BED]
     Route: 048
     Dates: start: 2014
  18. CLONAZEPAM. [Concomitant]
     Active Substance: CLONAZEPAM
     Dosage: 5 MG, UNK, (1/2-10 MG)
  19. FLEXERIL [Concomitant]
     Active Substance: CYCLOBENZAPRINE HYDROCHLORIDE
     Indication: MYALGIA
  20. MOBIC [Concomitant]
     Active Substance: MELOXICAM
     Indication: PAIN IN EXTREMITY
     Dosage: 15 MG, AS NEEDED (ONLY 2-3 PER MONTH)
     Route: 048
  21. KLONOPIN [Concomitant]
     Active Substance: CLONAZEPAM
     Dosage: 0.5 MG, 1X/DAY (AT BEDTIME)
     Route: 048
  22. CYCLOBENZAPRINE [Concomitant]
     Active Substance: CYCLOBENZAPRINE
     Dosage: 10 MG, 1X/DAY [BEFORE BED ]
     Dates: start: 2016

REACTIONS (11)
  - Drug dependence [Unknown]
  - Muscle contracture [Not Recovered/Not Resolved]
  - Pain [Not Recovered/Not Resolved]
  - Condition aggravated [Not Recovered/Not Resolved]
  - Intentional product use issue [Recovered/Resolved]
  - Product use issue [Unknown]
  - Insomnia [Recovered/Resolved]
  - Dysaesthesia [Not Recovered/Not Resolved]
  - Depression [Recovered/Resolved]
  - Irritability [Unknown]
  - Pain in extremity [Not Recovered/Not Resolved]

NARRATIVE: CASE EVENT DATE: 20160101
